FAERS Safety Report 5531563-0 (Version None)
Quarter: 2007Q4

REPORT INFORMATION
  Report Type: 
  Country: None (occurrence: None)
  Receive Date: 20071203
  Receipt Date: 20071130
  Transmission Date: 20080405
  Serious: Yes (Death, Other)
  Sender: FDA-Public Use
  Company Number: PHNU2007DE02963

PATIENT
  Sex: Male

DRUGS (1)
  1. ZOMETA [Suspect]
     Indication: METASTASES TO BONE
     Dosage: 4 MG, QMO
     Dates: start: 20070824

REACTIONS (8)
  - BRAIN OPERATION [None]
  - INAPPROPRIATE SCHEDULE OF DRUG ADMINISTRATION [None]
  - INFLUENZA LIKE ILLNESS [None]
  - MENINGITIS [None]
  - MYALGIA [None]
  - PAIN IN EXTREMITY [None]
  - POST PROCEDURAL INFECTION [None]
  - PYREXIA [None]
